FAERS Safety Report 10658132 (Version 2)
Quarter: 2014Q4

REPORT INFORMATION
  Report Type: Spontaneous
  Country: US (occurrence: US)
  Receive Date: 20141217
  Receipt Date: 20141217
  Transmission Date: 20150529
  Serious: Yes (Other)
  Sender: FDA-Public Use
  Company Number: US-GLAXOSMITHKLINE-A1063397A

PATIENT

DRUGS (8)
  1. ASPIRIN. [Concomitant]
     Active Substance: ASPIRIN
  2. ISRADIPINE. [Concomitant]
     Active Substance: ISRADIPINE
  3. MULTIVITAMIN [Concomitant]
     Active Substance: VITAMINS
  4. VALSARTAN AND HYDROCHLOROTHIAZIDE [Concomitant]
     Active Substance: HYDROCHLOROTHIAZIDE\VALSARTAN
  5. VOTRIENT [Suspect]
     Active Substance: PAZOPANIB HYDROCHLORIDE
     Indication: RENAL CELL CARCINOMA
     Route: 048
     Dates: end: 20140225
  6. OMEGA 3 FISH OIL [Concomitant]
     Active Substance: FISH OIL\OMEGA-3 FATTY ACIDS
  7. SIMVASTATIN. [Concomitant]
     Active Substance: SIMVASTATIN
  8. CO-ENZYME Q 10 [Concomitant]

REACTIONS (6)
  - Alanine aminotransferase increased [Recovering/Resolving]
  - Blood alkaline phosphatase increased [Recovering/Resolving]
  - Blood bilirubin increased [Recovering/Resolving]
  - Jaundice [Recovering/Resolving]
  - Fatigue [Recovering/Resolving]
  - Aspartate aminotransferase increased [Recovering/Resolving]

NARRATIVE: CASE EVENT DATE: 20140225
